FAERS Safety Report 11804009 (Version 1)
Quarter: 2015Q4

REPORT INFORMATION
  Report Type: Report from Study
  Country: KR (occurrence: KR)
  Receive Date: 20151204
  Receipt Date: 20151204
  Transmission Date: 20160305
  Serious: Yes (Hospitalization)
  Sender: FDA-Public Use
  Company Number: KR-SUNOVION-2015SP002178

PATIENT
  Age: 15 Year
  Sex: Female
  Weight: 63.8 kg

DRUGS (1)
  1. LURASIDONE HYDROCHLORIDE [Suspect]
     Active Substance: LURASIDONE HYDROCHLORIDE
     Indication: BIPOLAR DISORDER
     Dosage: 60 MG, QD
     Route: 048
     Dates: start: 20150615

REACTIONS (1)
  - Bipolar disorder [Recovered/Resolved]

NARRATIVE: CASE EVENT DATE: 20150623
